FAERS Safety Report 20020626 (Version 2)
Quarter: 2022Q1

REPORT INFORMATION
  Report Type: Report from Study
  Country: US (occurrence: US)
  Receive Date: 20211101
  Receipt Date: 20220209
  Transmission Date: 20220423
  Serious: No
  Sender: FDA-Public Use
  Company Number: US-Ipsen Biopharmaceuticals, Inc.-2021-26420

PATIENT
  Age: 42 Year
  Sex: Female

DRUGS (5)
  1. SOMATULINE DEPOT [Suspect]
     Active Substance: LANREOTIDE ACETATE
     Indication: Gastroenteropancreatic neuroendocrine tumour disease
     Dosage: DOSE AND STRENGTH: 120MG
     Route: 058
     Dates: start: 2019
  2. VITAMIN D [Concomitant]
     Active Substance: VITAMIN D NOS
  3. EFFEXOR [Concomitant]
     Active Substance: VENLAFAXINE HYDROCHLORIDE
  4. LOSARTAN [Concomitant]
     Active Substance: LOSARTAN
  5. METOPROLOL [Concomitant]
     Active Substance: METOPROLOL

REACTIONS (6)
  - Injection site nodule [Recovering/Resolving]
  - Fatigue [Recovering/Resolving]
  - Injection site erythema [Recovering/Resolving]
  - Alopecia [Recovering/Resolving]
  - Injection site pain [Unknown]
  - Injection site pruritus [Unknown]
